FAERS Safety Report 7875758-X (Version None)
Quarter: 2011Q4

REPORT INFORMATION
  Report Type: 
  Country: None (occurrence: None)
  Receive Date: 20111031
  Receipt Date: 20111020
  Transmission Date: 20120403
  Serious: Yes (Hospitalization, Other)
  Sender: FDA-Public Use
  Company Number: US-BAYER-2011-102722

PATIENT
  Age: 28 Year
  Sex: Female

DRUGS (1)
  1. MIRENA [Suspect]
     Dosage: UNK
     Dates: start: 20061024

REACTIONS (12)
  - DISCOMFORT [None]
  - PELVIC INFLAMMATORY DISEASE [None]
  - PAIN [None]
  - INFECTION [None]
  - INJURY [None]
  - TUBO-OVARIAN ABSCESS [None]
  - UTERINE PERFORATION [None]
  - ADNEXA UTERI MASS [None]
  - UTERINE HAEMORRHAGE [None]
  - URINARY TRACT INFECTION [None]
  - OVARIAN CYST [None]
  - ABDOMINAL PAIN [None]
